FAERS Safety Report 6771454-0 (Version None)
Quarter: 2010Q2

REPORT INFORMATION
  Report Type: 
  Country: None (occurrence: None)
  Receive Date: 20100616
  Receipt Date: 20100603
  Transmission Date: 20101027
  Serious: Yes (Hospitalization)
  Sender: FDA-Public Use
  Company Number: US-ROCHE-677735

PATIENT
  Sex: Female
  Weight: 89.8 kg

DRUGS (8)
  1. PEGINTERFERON ALFA-2A [Suspect]
     Route: 058
     Dates: start: 20091030
  2. PEGINTERFERON ALFA-2A [Suspect]
     Dosage: LAST DOSE PRIOR TO SAE: 1 JAN 2010
     Route: 058
     Dates: start: 20091222
  3. RO 5190591 (ITMN-191) [Suspect]
     Dosage: DOSE BLINDED
     Route: 048
     Dates: start: 20091030
  4. RO 5190591 (ITMN-191) [Suspect]
     Dosage: LAST DATE PRIOR TO SAE: 2 JAN 2010, DOSE BLINDED
     Route: 048
     Dates: start: 20091222, end: 20100103
  5. RO 5190591 (ITMN-191) [Suspect]
     Route: 048
     Dates: start: 20100104
  6. RIBAVIRIN [Suspect]
     Route: 048
     Dates: start: 20091030
  7. RIBAVIRIN [Suspect]
     Dosage: LAST DATE PRIOR TO SAE: 2 JAN 2010
     Route: 048
     Dates: start: 20091222, end: 20100103
  8. RIBAVIRIN [Suspect]
     Route: 048
     Dates: start: 20100104

REACTIONS (4)
  - ASCITES [None]
  - MUSCULOSKELETAL PAIN [None]
  - PLATELET COUNT DECREASED [None]
  - PNEUMONIA [None]
